FAERS Safety Report 24547805 (Version 5)
Quarter: 2025Q3

REPORT INFORMATION
  Report Type: Report from Study
  Country: US (occurrence: US)
  Receive Date: 20241025
  Receipt Date: 20250709
  Transmission Date: 20251021
  Serious: Yes (Hospitalization)
  Sender: ROCHE
  Company Number: US-ROCHE-10000114594

PATIENT
  Age: 54 Year
  Sex: Female

DRUGS (23)
  1. RITUXAN [Suspect]
     Active Substance: RITUXIMAB
     Indication: Myelin oligodendrocyte glycoprotein antibody-associated disease
     Route: 042
     Dates: start: 2022
  2. ENSPRYNG [Suspect]
     Active Substance: SATRALIZUMAB-MWGE
     Indication: Myelin oligodendrocyte glycoprotein antibody-associated disease
     Dosage: FORM STRENGTH: 120 MG/ML?SUBSEQUENT DOSAGE WAS ON 05-AUG-2024 AND 20-NOV-2024
     Route: 058
  3. ALBUTEROL [Concomitant]
     Active Substance: ALBUTEROL
  4. BACLOFEN [Concomitant]
     Active Substance: BACLOFEN
  5. BUDESONIDE\FORMOTEROL [Concomitant]
     Active Substance: BUDESONIDE\FORMOTEROL
  6. CALCIUM CARBONATE [Concomitant]
     Active Substance: CALCIUM CARBONATE
  7. FAMOTIDINE [Concomitant]
     Active Substance: FAMOTIDINE
  8. FLUTICASONE PROPIONATE [Concomitant]
     Active Substance: FLUTICASONE PROPIONATE
  9. GABAPENTIN [Concomitant]
     Active Substance: GABAPENTIN
  10. HYDROXYZINE [Concomitant]
     Active Substance: HYDROXYZINE HYDROCHLORIDE
  11. LAMOTRIGINE [Concomitant]
     Active Substance: LAMOTRIGINE
  12. LEVOTHYROXINE [Concomitant]
     Active Substance: LEVOTHYROXINE
  13. MAGNESIUM OXIDE [Concomitant]
     Active Substance: MAGNESIUM OXIDE
  14. MECLIZINE [Concomitant]
     Active Substance: MECLIZINE HYDROCHLORIDE
  15. METOCLOPRAMIDE [Concomitant]
     Active Substance: METOCLOPRAMIDE
  16. MODAFINIL [Concomitant]
     Active Substance: MODAFINIL
  17. MONTELUKAST [Concomitant]
     Active Substance: MONTELUKAST
  18. NAPROXEN [Concomitant]
     Active Substance: NAPROXEN
  19. omega-3 fatty acids-fish oil [Concomitant]
  20. TIOTROPIUM BROMIDE [Concomitant]
     Active Substance: TIOTROPIUM BROMIDE
  21. VENLAFAXINE HYDROCHLORIDE [Concomitant]
     Active Substance: VENLAFAXINE HYDROCHLORIDE
  22. vit B complex 100 no.2/herbs [Concomitant]
  23. vitamin D3-vitamin K2, MK4 [Concomitant]

REACTIONS (22)
  - Pharyngitis streptococcal [Unknown]
  - Pneumonia pseudomonal [Unknown]
  - Cardiac failure congestive [Not Recovered/Not Resolved]
  - Urinary incontinence [Unknown]
  - Pollakiuria [Unknown]
  - Urge incontinence [Unknown]
  - Lumbosacral radiculopathy [Unknown]
  - Neuralgia [Unknown]
  - Obstructive sleep apnoea syndrome [Unknown]
  - Pneumonia [Not Recovered/Not Resolved]
  - Off label use [Unknown]
  - Tremor [Recovered/Resolved]
  - Irritability [Recovered/Resolved]
  - Rash [Recovered/Resolved]
  - Anaemia [Unknown]
  - Thyroid mass [Not Recovered/Not Resolved]
  - Upper-airway cough syndrome [Not Recovered/Not Resolved]
  - Fluid retention [Unknown]
  - Muscle spasms [Unknown]
  - Nausea [Unknown]
  - Ageusia [Unknown]
  - Paraesthesia [Recovered/Resolved]

NARRATIVE: CASE EVENT DATE: 20220902
